FAERS Safety Report 7676706-8 (Version None)
Quarter: 2011Q3

REPORT INFORMATION
  Report Type: 
  Country: None (occurrence: None)
  Receive Date: 20110805
  Receipt Date: 20110721
  Transmission Date: 20111222
  Serious: Yes (Hospitalization, Disabling, Other)
  Sender: FDA-Public Use
  Company Number: 2001MA009276

PATIENT
  Age: 55 Year
  Sex: Female

DRUGS (2)
  1. METOPROLOL TARTRATE [Suspect]
     Indication: INTENTIONAL OVERDOSE
     Dosage: 1750 MG; 1X
  2. VERAPAMIL HCL [Suspect]
     Indication: INTENTIONAL OVERDOSE
     Dosage: 120 MG; 1X

REACTIONS (18)
  - COLD SWEAT [None]
  - SUICIDE ATTEMPT [None]
  - LETHARGY [None]
  - BLOOD PRESSURE DECREASED [None]
  - METABOLIC ACIDOSIS [None]
  - HAEMODYNAMIC INSTABILITY [None]
  - OPTIC ISCHAEMIC NEUROPATHY [None]
  - MULTIPLE DRUG OVERDOSE INTENTIONAL [None]
  - ATRIOVENTRICULAR BLOCK SECOND DEGREE [None]
  - MYDRIASIS [None]
  - DISORIENTATION [None]
  - PULSE ABSENT [None]
  - VISUAL FIELD DEFECT [None]
  - BLOOD GLUCOSE INCREASED [None]
  - PUPILLARY REFLEX IMPAIRED [None]
  - BLOOD BICARBONATE DECREASED [None]
  - HYPOPERFUSION [None]
  - VISUAL ACUITY REDUCED [None]
